FAERS Safety Report 7756452-2 (Version None)
Quarter: 2011Q3

REPORT INFORMATION
  Report Type: 
  Country: None (occurrence: None)
  Receive Date: 20110915
  Receipt Date: 20110915
  Transmission Date: 20111222
  Serious: Yes (Disabling)
  Sender: FDA-Public Use
  Company Number: None

PATIENT
  Age: 3 Month
  Sex: Female
  Weight: 2.25 kg

DRUGS (2)
  1. AVASTIN [Suspect]
     Indication: RETINOPATHY OF PREMATURITY
     Dosage: 0.625 MG 1X L EYE INTRAVITREAL
     Dates: start: 20110814
  2. AVASTIN [Suspect]
     Indication: RETINOPATHY OF PREMATURITY
     Dosage: 0.625 MG X 1 R. EYE INTRAVITREAL
     Dates: start: 20110811

REACTIONS (8)
  - CORNEAL OEDEMA [None]
  - INFLAMMATION [None]
  - PYREXIA [None]
  - CORNEAL OPACITY [None]
  - LENS DISORDER [None]
  - INTRAOCULAR PRESSURE INCREASED [None]
  - EYE DISORDER [None]
  - UNEVALUABLE EVENT [None]
